FAERS Safety Report 13006384 (Version 2)
Quarter: 2017Q1

REPORT INFORMATION
  Report Type: Spontaneous
  Country: US (occurrence: US)
  Receive Date: 20161207
  Receipt Date: 20170106
  Transmission Date: 20170428
  Serious: No
  Sender: FDA-Public Use
  Company Number: US-GLAXOSMITHKLINE-US2016GSK162427

PATIENT
  Sex: Female

DRUGS (22)
  1. ADVAIR DISKUS [Suspect]
     Active Substance: FLUTICASONE PROPIONATE\SALMETEROL XINAFOATE
  2. ADVIL TABLET [Concomitant]
     Indication: PAIN
     Dosage: 400 MG, BID
  3. PROAIR HFA [Concomitant]
     Active Substance: ALBUTEROL SULFATE
     Indication: WHEEZING
  4. STOOL SOFTENER (DOCUSATE CALCIUM) [Concomitant]
     Active Substance: DOCUSATE CALCIUM
  5. LUMIGAN (BIMATOPROST) [Concomitant]
  6. TRAMADOL. [Concomitant]
     Active Substance: TRAMADOL
  7. VITAMIN D TABLET [Concomitant]
     Dosage: 1000 UNK, UNK
  8. ALIGN CAPSULE [Concomitant]
     Dosage: UNK, QD
  9. EPIPEN INJECTION [Concomitant]
     Indication: PROPHYLAXIS
  10. ZOFRAN ODT [Concomitant]
     Active Substance: ONDANSETRON HYDROCHLORIDE
     Indication: NAUSEA
     Dosage: 4 MG, QD
  11. ZANAFLEX [Concomitant]
     Active Substance: TIZANIDINE HYDROCHLORIDE
     Indication: MUSCLE SPASMS
     Dosage: UNK, QD
  12. CYMBALTA [Concomitant]
     Active Substance: DULOXETINE HYDROCHLORIDE
     Dosage: 30 MG, QD
  13. DESYREL [Concomitant]
     Active Substance: TRAZODONE HYDROCHLORIDE
     Indication: SOMNOLENCE
     Dosage: 100 MG, QD
  14. VIBRAMYCIN [Concomitant]
     Active Substance: DOXYCYCLINE
     Indication: SINUSITIS
     Dosage: 100 MG, QD
  15. NORCO TABLET [Concomitant]
     Indication: PAIN
     Dosage: UNK
  16. SEASONAL INFLUENZA VACCINE SOLUTION FOR INJECTION [Suspect]
     Active Substance: INFLUENZA VIRUS VACCINE
     Indication: PROPHYLAXIS
  17. NASACORT AQ [Concomitant]
     Active Substance: TRIAMCINOLONE ACETONIDE
     Dosage: 55 MCG/MG, UNK
  18. ZYRTEC P [Concomitant]
     Dosage: 10 MG, UNK
  19. ZANTAC [Concomitant]
     Active Substance: RANITIDINE HYDROCHLORIDE
     Dosage: 150 MG, BID
  20. SINGULAIR [Concomitant]
     Active Substance: MONTELUKAST SODIUM
     Dosage: UNK, QD
  21. ASPIRIN. [Suspect]
     Active Substance: ASPIRIN
  22. DITROPAN XL TABLET [Concomitant]
     Dosage: 10 MG, QD

REACTIONS (1)
  - Drug hypersensitivity [Unknown]
